FAERS Safety Report 20600431 (Version 1)
Quarter: 2022Q1

REPORT INFORMATION
  Report Type: Spontaneous
  Country: US (occurrence: US)
  Receive Date: 20220316
  Receipt Date: 20220316
  Transmission Date: 20220424
  Serious: Yes (Hospitalization)
  Sender: FDA-Public Use
  Company Number: US-Global Blood Therapeutics Inc-US-GBT-22-01240

PATIENT
  Age: 72 Year
  Sex: Female

DRUGS (12)
  1. OXBRYTA [Suspect]
     Active Substance: VOXELOTOR
     Indication: Product used for unknown indication
     Route: 048
     Dates: start: 20210502
  2. PROMACTA [Concomitant]
     Active Substance: ELTROMBOPAG OLAMINE
     Indication: Product used for unknown indication
  3. METOPROLOL [Concomitant]
     Active Substance: METOPROLOL
     Indication: Product used for unknown indication
  4. FOLIC ACID [Concomitant]
     Active Substance: FOLIC ACID
     Indication: Product used for unknown indication
  5. LASIX [Concomitant]
     Active Substance: FUROSEMIDE
     Indication: Product used for unknown indication
  6. PANTOPRAZOLE SODIUM [Concomitant]
     Active Substance: PANTOPRAZOLE SODIUM
     Indication: Product used for unknown indication
  7. MORPHINE [Concomitant]
     Active Substance: MORPHINE
     Indication: Pain
  8. SENNA [Concomitant]
     Active Substance: SENNA LEAF\SENNOSIDES\SENNOSIDES A AND B
     Indication: Product used for unknown indication
     Dosage: NOT PROVIDED
  9. DOCUSATE [Concomitant]
     Active Substance: DOCUSATE
     Indication: Product used for unknown indication
     Dosage: NOT PROVIDED
  10. REPHRESH LUBRICATING EYE DROPS [Concomitant]
     Indication: Product used for unknown indication
     Dosage: NOT PROVIDED
  11. RESTASIS [Concomitant]
     Active Substance: CYCLOSPORINE
     Indication: Product used for unknown indication
     Dosage: NOT PROVIDED
  12. LATANOPROST [Concomitant]
     Active Substance: LATANOPROST
     Indication: Product used for unknown indication
     Dosage: NOT PROVIDED

REACTIONS (3)
  - Foot operation [Unknown]
  - Sickle cell anaemia with crisis [Unknown]
  - Off label use [Unknown]

NARRATIVE: CASE EVENT DATE: 20210502
